FAERS Safety Report 12847045 (Version 2)
Quarter: 2017Q1

REPORT INFORMATION
  Report Type: Report from Study
  Country: None (occurrence: DE)
  Receive Date: 20161014
  Receipt Date: 20170215
  Transmission Date: 20170428
  Serious: Yes (Hospitalization)
  Sender: FDA-Public Use
  Company Number: DE-ABBVIE-16K-062-1752459-00

PATIENT
  Age: 57 Year
  Sex: Female

DRUGS (2)
  1. HUMIRA [Suspect]
     Active Substance: ADALIMUMAB
     Indication: CROHN^S DISEASE
     Route: 058
     Dates: start: 20160821, end: 201608
  2. HUMIRA [Suspect]
     Active Substance: ADALIMUMAB
     Route: 058
     Dates: start: 201609

REACTIONS (7)
  - Drug intolerance [Unknown]
  - Malaise [Unknown]
  - Tongue discomfort [Not Recovered/Not Resolved]
  - Dysgeusia [Not Recovered/Not Resolved]
  - Unevaluable event [Unknown]
  - Ileus [Recovered/Resolved]
  - Dry skin [Unknown]

NARRATIVE: CASE EVENT DATE: 201608
